FAERS Safety Report 9285322 (Version 2)
Quarter: 2013Q2

REPORT INFORMATION
  Report Type: Spontaneous
  Country: US (occurrence: None)
  Receive Date: 20130507
  Receipt Date: 20130611
  Transmission Date: 20140414
  Serious: Yes (Hospitalization, Other)
  Sender: FDA-Public Use
  Company Number: DSU-2013-02707

PATIENT
  Age: 84 Year
  Sex: Female
  Weight: 57.61 kg

DRUGS (6)
  1. BENICAR [Suspect]
     Indication: HYPERTENSION
     Dosage: 20 MG (20 MG, QD), PER ORAL
     Route: 048
     Dates: start: 20111001
  2. ZONEGRAN (ZONISAMIDE) [Concomitant]
  3. TRILEPTAL (OXCARBAZEPINE) [Concomitant]
  4. XANAX (ALPRAZOLAM) [Concomitant]
  5. ASA (ACETYLSALICYLIC ACID) (ACETYLSALICYLIC ACID) [Concomitant]
  6. CALTRATE (CALCIUM CARBONATE) (CALCIUM CARBONATE) [Concomitant]

REACTIONS (16)
  - Insomnia [None]
  - Blood uric acid increased [None]
  - Vision blurred [None]
  - Hypertension [None]
  - Complex partial seizures [None]
  - Pain [None]
  - Hypertension [None]
  - Ear discomfort [None]
  - Blood creatinine increased [None]
  - Glomerular filtration rate decreased [None]
  - Treatment noncompliance [None]
  - Anxiety [None]
  - Blepharitis [None]
  - Blood urea increased [None]
  - Gout [None]
  - Alcohol use [None]
